FAERS Safety Report 17705397 (Version 1)
Quarter: 2020Q2

REPORT INFORMATION
  Report Type: Spontaneous
  Country: SE (occurrence: SE)
  Receive Date: 20200424
  Receipt Date: 20200424
  Transmission Date: 20200714
  Serious: Yes (Hospitalization)
  Sender: FDA-Public Use
  Company Number: SE-TEVA-2020-SE-1226359

PATIENT
  Sex: Female
  Weight: 97 kg

DRUGS (1)
  1. ENALAPRIL TEVA 10 MG TABLETT [Suspect]
     Active Substance: ENALAPRIL
     Indication: HYPERTENSION
     Dosage: 10 MILLIGRAM DAILY;

REACTIONS (3)
  - Anxiety [Recovering/Resolving]
  - Chills [Recovering/Resolving]
  - Derealisation [Recovering/Resolving]
